FAERS Safety Report 5077954-6 (Version None)
Quarter: 2006Q3

REPORT INFORMATION
  Report Type: 
  Country: None (occurrence: None)
  Receive Date: 20060811
  Receipt Date: 20060801
  Transmission Date: 20061208
  Serious: Yes (Other)
  Sender: FDA-Public Use
  Company Number: PHNU2006DE02666

PATIENT
  Age: 57 Year
  Sex: Female
  Weight: 68 kg

DRUGS (2)
  1. ZOMETA [Suspect]
     Indication: METASTASES TO BONE
     Dosage: 4 MG, UNK
     Route: 042
     Dates: start: 20060210, end: 20060413
  2. AROMASIN [Concomitant]
     Dosage: 25 MG/DAY
     Route: 048
     Dates: start: 20060220

REACTIONS (2)
  - DEPRESSION [None]
  - SUICIDAL IDEATION [None]
